FAERS Safety Report 6721889-7 (Version None)
Quarter: 2010Q2

REPORT INFORMATION
  Report Type: 
  Country: None (occurrence: None)
  Receive Date: 20100512
  Receipt Date: 20100504
  Transmission Date: 20101027
  Serious: Yes (Hospitalization)
  Sender: FDA-Public Use
  Company Number: IT-ABBOTT-10P-083-0642466-00

PATIENT
  Sex: Female

DRUGS (7)
  1. WARFARIN SODIUM [Suspect]
     Indication: THROMBOSIS PROPHYLAXIS
     Dates: end: 20051003
  2. IRINOTECAN HYDROCHLORIDE [Suspect]
     Indication: GASTRIC CANCER
     Route: 042
     Dates: start: 20050921
  3. IRINOTECAN HYDROCHLORIDE [Suspect]
     Indication: OESOPHAGEAL ADENOCARCINOMA
  4. FLUOROURACIL [Suspect]
     Indication: GASTRIC CANCER
     Route: 042
     Dates: start: 20050921
  5. FLUOROURACIL [Suspect]
     Indication: OESOPHAGEAL ADENOCARCINOMA
     Dosage: BOLUS
     Route: 042
     Dates: start: 20050921
  6. FOLINIC ACID [Suspect]
     Indication: GASTRIC CANCER
     Route: 042
     Dates: start: 20050921
  7. FOLINIC ACID [Suspect]
     Indication: OESOPHAGEAL ADENOCARCINOMA

REACTIONS (1)
  - INTERNATIONAL NORMALISED RATIO INCREASED [None]
